FAERS Safety Report 4598362-8 (Version None)
Quarter: 2005Q1

REPORT INFORMATION
  Report Type: 
  Country: None (occurrence: None)
  Receive Date: 20050302
  Receipt Date: 20050215
  Transmission Date: 20050727
  Serious: Yes (Other)
  Sender: FDA-Public Use
  Company Number: 206207

PATIENT
  Age: 70 Year
  Sex: Female

DRUGS (8)
  1. AVONEX [Suspect]
     Indication: MULTIPLE SCLEROSIS
     Dosage: 30 UG; QW; IM
     Route: 030
     Dates: start: 20030601
  2. AVONEX [Suspect]
     Indication: MULTIPLE SCLEROSIS
     Dosage: 30 UG; QW; IM
     Route: 030
  3. ATENOLOL [Concomitant]
  4. ELAVIL [Concomitant]
  5. ASPIRIN [Concomitant]
  6. COENZYME Q [Concomitant]
  7. MULTIVITAMINE [Concomitant]
  8. ZINC [Concomitant]

REACTIONS (3)
  - BREAST CANCER FEMALE [None]
  - MALAISE [None]
  - PROCEDURAL COMPLICATION [None]
